FAERS Safety Report 10932424 (Version 1)
Quarter: 2015Q1

REPORT INFORMATION
  Report Type: Spontaneous
  Country: US (occurrence: None)
  Receive Date: 20150318
  Receipt Date: 20150318
  Transmission Date: 20150721
  Serious: Yes (Other)
  Sender: FDA-Public Use
  Company Number: US-ZYDUS-006938

PATIENT
  Age: 48 Year
  Sex: Female

DRUGS (3)
  1. SOFOSBUVIR (SOFOSBUVIR) [Suspect]
     Active Substance: SOFOSBUVIR
     Indication: CHRONIC HEPATITIS C
  2. RIBAVIRIN (RIBAVIRIN) [Suspect]
     Active Substance: RIBAVIRIN
     Indication: CHRONIC HEPATITIS C
  3. SIMEPREVIR (SIMEPREVIR) [Suspect]
     Active Substance: SIMEPREVIR

REACTIONS (4)
  - Anaemia [None]
  - Depressive symptom [None]
  - Gastrointestinal disorder [None]
  - Hyperbilirubinaemia [None]
